FAERS Safety Report 4614278-2 (Version None)
Quarter: 2005Q1

REPORT INFORMATION
  Report Type: 
  Country: None (occurrence: None)
  Receive Date: 20050315
  Receipt Date: 20050228
  Transmission Date: 20050727
  Serious: Yes (Other)
  Sender: FDA-Public Use
  Company Number: USA050392065

PATIENT
  Age: 56 Year
  Sex: Female

DRUGS (8)
  1. CYMBALTA [Suspect]
     Indication: DEPRESSION
     Dosage: 60 MG DAY
     Dates: start: 20050205, end: 20050216
  2. NEURONTIN (GABAPENTIN PFIZER) [Concomitant]
  3. TOPOMAX (TOPIRAMATE) [Concomitant]
  4. ARIMIDEX [Concomitant]
  5. ATIVAN [Concomitant]
  6. ALTACE (RAMIPRIL DURA) [Concomitant]
  7. PERCOCET [Concomitant]
  8. EFFEXOR [Concomitant]

REACTIONS (9)
  - ALANINE AMINOTRANSFERASE INCREASED [None]
  - ASTHENIA [None]
  - CHILLS [None]
  - DIARRHOEA [None]
  - GASTROENTERITIS VIRAL [None]
  - LIPASE INCREASED [None]
  - PYREXIA [None]
  - VIRAL INFECTION [None]
  - VOMITING [None]
